FAERS Safety Report 9450417 (Version 2)
Quarter: 2013Q3

REPORT INFORMATION
  Report Type: Spontaneous
  Country: GB (occurrence: None)
  Receive Date: 20130807
  Receipt Date: 20130903
  Transmission Date: 20140515
  Serious: Yes (Life-Threatening, Hospitalization, Disabling, Other)
  Sender: FDA-Public Use
  Company Number: AUR-APL-2013-06394

PATIENT
  Age: 67 Year
  Sex: Female
  Weight: 56 kg

DRUGS (10)
  1. PIOGLITAZONE [Suspect]
     Indication: TYPE 2 DIABETES MELLITUS
     Route: 048
     Dates: end: 20130624
  2. ADCAL-D3 (LEKOVITCA) [Concomitant]
  3. ARIPIPRAZOLE (ARIPIPRAZOLE) [Concomitant]
  4. ATORVASTATIN (ATORVASTATIN) [Concomitant]
  5. CREON (PANCREATIN) [Concomitant]
  6. FERROUS FUMARATE (FERROUS FUMARATE) [Concomitant]
  7. FLUOXETINE (FLUOXETINE) [Concomitant]
  8. LEVOTHYROXINE (LEVOTHYROXINE) [Concomitant]
  9. METFORMIN (METFORMIN) [Concomitant]
  10. RAMIPRIL (RAMIPRIL) [Concomitant]

REACTIONS (9)
  - Anaemia [None]
  - Renal failure acute [None]
  - Bladder neoplasm [None]
  - Kidney enlargement [None]
  - Metastases to lung [None]
  - Malignant neoplasm of unknown primary site [None]
  - Metastasis [None]
  - Pelvic mass [None]
  - Cells in urine [None]
